FAERS Safety Report 5424464-X (Version None)
Quarter: 2007Q3

REPORT INFORMATION
  Report Type: 
  Country: None (occurrence: None)
  Receive Date: 20070822
  Receipt Date: 20070810
  Transmission Date: 20080115
  Serious: Yes (Hospitalization)
  Sender: FDA-Public Use
  Company Number: 2007BI016545

PATIENT
  Age: 53 Year
  Sex: Female

DRUGS (5)
  1. NATALIZUMAB (NATALIZUMAB ) [Suspect]
     Indication: MULTIPLE SCLEROSIS
     Dosage: 300 MG; QM; IV
     Route: 042
     Dates: start: 20061124, end: 20070804
  2. CORTISONE ACETATE TAB [Concomitant]
  3. BETAFERON [Concomitant]
  4. MITOXANTRONE [Concomitant]
  5. ENDOXAN [Concomitant]

REACTIONS (7)
  - BLOOD UREA INCREASED [None]
  - HAEMOGLOBIN DECREASED [None]
  - HERPES ZOSTER [None]
  - HYPERTENSION [None]
  - MONOCYTE PERCENTAGE INCREASED [None]
  - NEUTROPHIL PERCENTAGE DECREASED [None]
  - RED BLOOD CELL COUNT DECREASED [None]
